FAERS Safety Report 15243852 (Version 4)
Quarter: 2019Q3

REPORT INFORMATION
  Report Type: Spontaneous
  Country: AR (occurrence: AR)
  Receive Date: 20180806
  Receipt Date: 20190722
  Transmission Date: 20191004
  Serious: Yes (Hospitalization, Other)
  Sender: FDA-Public Use
  Company Number: AR-ACTELION-A-CH2018-176651

PATIENT
  Age: 36 Year
  Sex: Female
  Weight: 40 kg

DRUGS (2)
  1. OPSUMIT [Suspect]
     Active Substance: MACITENTAN
     Indication: PULMONARY ARTERIAL HYPERTENSION
     Dosage: 10 MG, QD
     Route: 048
     Dates: start: 201701
  2. OXYGEN. [Concomitant]
     Active Substance: OXYGEN

REACTIONS (9)
  - Hospitalisation [Recovering/Resolving]
  - Product supply issue [Not Recovered/Not Resolved]
  - Bronchospasm [Not Recovered/Not Resolved]
  - Lung infection [Recovering/Resolving]
  - Peripheral swelling [Recovering/Resolving]
  - Product dose omission [Not Recovered/Not Resolved]
  - General physical health deterioration [Recovering/Resolving]
  - Balance disorder [Recovering/Resolving]
  - Influenza [Not Recovered/Not Resolved]

NARRATIVE: CASE EVENT DATE: 20180727
